FAERS Safety Report 6704411-0 (Version None)
Quarter: 2010Q2

REPORT INFORMATION
  Report Type: 
  Country: None (occurrence: None)
  Receive Date: 20100430
  Receipt Date: 20100427
  Transmission Date: 20101027
  Serious: Yes (Death)
  Sender: FDA-Public Use
  Company Number: JP-BRISTOL-MYERS SQUIBB COMPANY-15071665

PATIENT
  Age: 71 Year
  Sex: Female

DRUGS (3)
  1. SPRYCEL [Suspect]
     Indication: CHRONIC MYELOID LEUKAEMIA
     Dosage: 100X1MG/D-25DEC2009-UNK
     Route: 048
     Dates: start: 20091225
  2. PREDONINE [Suspect]
  3. LASIX [Suspect]

REACTIONS (1)
  - CARDIAC FAILURE [None]
